FAERS Safety Report 14356948 (Version 4)
Quarter: 2018Q3

REPORT INFORMATION
  Report Type: Report from Study
  Country: US (occurrence: US)
  Receive Date: 20180105
  Receipt Date: 20180719
  Transmission Date: 20181010
  Serious: No
  Sender: FDA-Public Use
  Company Number: US-AMGEN-USASL2017174341

PATIENT
  Age: 56 Year
  Sex: Female
  Weight: 63.9 kg

DRUGS (2)
  1. REPATHA [Suspect]
     Active Substance: EVOLOCUMAB
     Dosage: UNK
     Route: 065
  2. REPATHA [Suspect]
     Active Substance: EVOLOCUMAB
     Indication: HYPERCHOLESTEROLAEMIA
     Dosage: 420 MG, QMO
     Route: 058
     Dates: start: 20171118

REACTIONS (5)
  - Injection site pruritus [Recovered/Resolved]
  - Vulvovaginal burning sensation [Recovered/Resolved]
  - Injection site swelling [Recovered/Resolved]
  - Back pain [Unknown]
  - Urine analysis abnormal [Unknown]

NARRATIVE: CASE EVENT DATE: 201711
